FAERS Safety Report 16055290 (Version 2)
Quarter: 2019Q1

REPORT INFORMATION
  Report Type: Report from Study
  Country: DE (occurrence: DE)
  Receive Date: 20190311
  Receipt Date: 20190314
  Transmission Date: 20190418
  Serious: Yes (Other)
  Sender: FDA-Public Use
  Company Number: DE-ROCHE-2279907

PATIENT

DRUGS (1)
  1. RITUXIMAB. [Suspect]
     Active Substance: RITUXIMAB
     Indication: IMMUNE THROMBOCYTOPENIC PURPURA
     Route: 065

REACTIONS (16)
  - Epistaxis [Unknown]
  - Bronchitis [Unknown]
  - Fatigue [Unknown]
  - Pain in extremity [Unknown]
  - Haemorrhage [Unknown]
  - Rash [Unknown]
  - Cataract [Unknown]
  - Diarrhoea [Unknown]
  - Abdominal pain [Unknown]
  - Nasopharyngitis [Unknown]
  - Pyrexia [Unknown]
  - Headache [Unknown]
  - Arthralgia [Unknown]
  - Influenza [Unknown]
  - Upper respiratory tract infection [Unknown]
  - Anaemia [Unknown]
